FAERS Safety Report 10381384 (Version 1)
Quarter: 2014Q1

REPORT INFORMATION
  Report Type: Spontaneous
  Country: US (occurrence: None)
  Receive Date: 20140306
  Receipt Date: 20140306
  Transmission Date: 20141002
  Serious: Yes (Hospitalization)
  Sender: FDA-Public Use
  Company Number: 163-21880-13024168

PATIENT
  Age: 65 Year
  Sex: Male

DRUGS (2)
  1. REVLIMID ( LENALIDOMIDE) ( 25 MILLIGRAM, CAPSULES) [Suspect]
     Indication: PLASMA CELL MYELOMA
     Route: 048
     Dates: start: 201101
  2. THALIDOMIDE (THALIDOMIDE) [Concomitant]

REACTIONS (2)
  - Plasma cell leukaemia [None]
  - Drug ineffective [None]
